FAERS Safety Report 7286830-X (Version None)
Quarter: 2011Q1

REPORT INFORMATION
  Report Type: 
  Country: None (occurrence: None)
  Receive Date: 20110210
  Receipt Date: 20090219
  Transmission Date: 20110831
  Serious: Yes (Death, Other)
  Sender: FDA-Public Use
  Company Number: US-BAYER-200825688NA

PATIENT
  Sex: Female

DRUGS (12)
  1. MAGNEVIST [Suspect]
     Indication: NUCLEAR MAGNETIC RESONANCE IMAGING
     Dosage: UNK, ONCE
     Dates: start: 20000223, end: 20000223
  2. OPTIMARK [Suspect]
     Indication: NUCLEAR MAGNETIC RESONANCE IMAGING
  3. OMNISCAN [Suspect]
     Indication: ANGIOGRAM
  4. MAGNEVIST [Suspect]
     Dosage: 20 ML, ONCE
     Dates: start: 20030707, end: 20030707
  5. MULTIHANCE [Suspect]
     Indication: ANGIOGRAM
  6. PROHANCE [Suspect]
     Indication: ANGIOGRAM
  7. PROHANCE [Suspect]
  8. OPTIMARK [Suspect]
     Indication: ANGIOGRAM
  9. MULTIHANCE [Suspect]
     Indication: NUCLEAR MAGNETIC RESONANCE IMAGING
  10. MAGNEVIST [Suspect]
     Dosage: 10 ML, ONCE
     Dates: start: 20000714, end: 20000714
  11. OMNISCAN [Suspect]
     Indication: NUCLEAR MAGNETIC RESONANCE IMAGING
  12. MAGNEVIST [Suspect]
     Dosage: 30 ML, ONCE
     Dates: start: 20030814, end: 20030814

REACTIONS (11)
  - INJURY [None]
  - OEDEMA PERIPHERAL [None]
  - ANXIETY [None]
  - JOINT RANGE OF MOTION DECREASED [None]
  - NEPHROGENIC SYSTEMIC FIBROSIS [None]
  - DEPRESSION [None]
  - EMOTIONAL DISTRESS [None]
  - GAIT DISTURBANCE [None]
  - PAIN [None]
  - SKIN TIGHTNESS [None]
  - RASH [None]
